FAERS Safety Report 8722819 (Version 2)
Quarter: 2012Q4

REPORT INFORMATION
  Report Type: 
  Country: US (occurrence: US)
  Receive Date: 20120814
  Receipt Date: 20121127
  Transmission Date: 20130627
  Serious: Yes (Hospitalization)
  Sender: FDA-Public Use
  Company Number: US-ROCHE-1100423

PATIENT
  Age: 50 Year
  Sex: Male

DRUGS (5)
  1. ACTIVASE [Suspect]
     Indication: ACUTE MYOCARDIAL INFARCTION
     Route: 065
  2. NITROGLYCERIN [Concomitant]
     Route: 065
  3. DOPAMINE [Concomitant]
     Route: 065
  4. LIDOCAINE [Concomitant]
     Route: 065
  5. HEPARIN [Concomitant]
     Route: 065

REACTIONS (4)
  - Hypotension [Unknown]
  - Blood creatine phosphokinase MB increased [Unknown]
  - Haematuria [Recovered/Resolved]
  - Blood creatine phosphokinase increased [Unknown]
